FAERS Safety Report 8257398-6 (Version None)
Quarter: 2012Q2

REPORT INFORMATION
  Report Type: 
  Country: None (occurrence: None)
  Receive Date: 20120403
  Receipt Date: 20120326
  Transmission Date: 20120825
  Serious: Yes (Other)
  Sender: FDA-Public Use
  Company Number: JP-VERTEX PHARMACEUTICALS INC.-AE-2012-004509

PATIENT
  Age: 60 Year
  Sex: Female

DRUGS (5)
  1. REBETOL [Concomitant]
     Indication: HEPATITIS C
     Route: 048
     Dates: start: 20120208, end: 20120222
  2. PEG-INTRON [Concomitant]
     Indication: HEPATITIS C
     Route: 051
     Dates: start: 20120208, end: 20120215
  3. PEG-INTRON [Concomitant]
     Dates: start: 20120215
  4. TELAVIC (TELAPREVIR) [Suspect]
     Indication: HEPATITIS C
     Route: 048
     Dates: start: 20120208
  5. REBETOL [Concomitant]
     Dates: start: 20120222

REACTIONS (1)
  - NEUTROPHIL COUNT DECREASED [None]
